FAERS Safety Report 6052719-7 (Version None)
Quarter: 2009Q1

REPORT INFORMATION
  Report Type: 
  Country: None (occurrence: None)
  Receive Date: 20090127
  Receipt Date: 20090121
  Transmission Date: 20090719
  Serious: Yes (Life-Threatening, Hospitalization)
  Sender: FDA-Public Use
  Company Number: FR-BRISTOL-MYERS SQUIBB COMPANY-14478853

PATIENT
  Age: 83 Year
  Sex: Female

DRUGS (12)
  1. COAPROVEL FILM-COATED TABS 300/12.5 MG [Suspect]
     Dates: end: 20081226
  2. SERESTA [Concomitant]
  3. ZOLOFT [Concomitant]
  4. ZYPREXA [Concomitant]
  5. LEPTICUR [Concomitant]
  6. ALPRAZOLAM [Concomitant]
  7. AMLOR [Concomitant]
  8. MEDIATENSYL [Concomitant]
  9. NEXIUM [Concomitant]
  10. IMOVANE [Concomitant]
  11. KALEORID [Concomitant]
  12. ASPEGIC 325 [Concomitant]

REACTIONS (1)
  - ANAEMIA HAEMOLYTIC AUTOIMMUNE [None]
